FAERS Safety Report 14187523 (Version 2)
Quarter: 2018Q1

REPORT INFORMATION
  Report Type: Spontaneous
  Country: BR (occurrence: BR)
  Receive Date: 20171114
  Receipt Date: 20180119
  Transmission Date: 20180508
  Serious: Yes (Other)
  Sender: FDA-Public Use
  Company Number: PHHY2017BR153277

PATIENT
  Age: 20 Year
  Sex: Female
  Weight: 73 kg

DRUGS (3)
  1. AMOXICILLIN + CLAVULANATE POTASSIUM [Suspect]
     Active Substance: AMOXICILLIN\CLAVULANATE POTASSIUM
     Indication: TONSILLITIS
     Dosage: 3 DF, QD
     Route: 048
     Dates: start: 20171009, end: 20171012
  2. AMOXICILLIN + CLAVULANATE POTASSIUM [Suspect]
     Active Substance: AMOXICILLIN\CLAVULANATE POTASSIUM
     Indication: OROPHARYNGEAL PLAQUE
  3. AMOXICILLIN + CLAVULANATE POTASSIUM [Suspect]
     Active Substance: AMOXICILLIN\CLAVULANATE POTASSIUM
     Indication: PYREXIA

REACTIONS (9)
  - Dysphonia [Recovered/Resolved]
  - Speech disorder [Recovered/Resolved]
  - Drug ineffective [Unknown]
  - Headache [Recovered/Resolved]
  - Pyrexia [Recovered/Resolved]
  - Choking sensation [Recovered/Resolved]
  - Condition aggravated [Unknown]
  - Tonsillar inflammation [Recovered/Resolved]
  - Sleep disorder [Unknown]

NARRATIVE: CASE EVENT DATE: 20171012
